FAERS Safety Report 16046602 (Version 1)
Quarter: 2019Q1

REPORT INFORMATION
  Report Type: Spontaneous
  Country: US (occurrence: US)
  Receive Date: 20190208
  Receipt Date: 20190208
  Transmission Date: 20190418
  Serious: Yes (Other)
  Sender: FDA-Public Use
  Company Number: None

PATIENT
  Age: 80 Year

DRUGS (1)
  1. PROLIA [Suspect]
     Active Substance: DENOSUMAB
     Indication: OSTEOPOROSIS
     Dates: start: 20180907

REACTIONS (6)
  - Diarrhoea [None]
  - Movement disorder [None]
  - Arthralgia [None]
  - Muscle spasms [None]
  - Gastric disorder [None]
  - Groin pain [None]

NARRATIVE: CASE EVENT DATE: 20180920
